FAERS Safety Report 17206032 (Version 3)
Quarter: 2020Q4

REPORT INFORMATION
  Report Type: Spontaneous
  Country: None (occurrence: CA)
  Receive Date: 20191227
  Receipt Date: 20201203
  Transmission Date: 20210113
  Serious: Yes (Other)
  Sender: FDA-Public Use
  Company Number: CA-ORION CORPORATION ORION PHARMA-19_00007986

PATIENT
  Age: 73 Year
  Sex: Female

DRUGS (1)
  1. METHOTREXATE. [Suspect]
     Active Substance: METHOTREXATE
     Indication: SERONEGATIVE ARTHRITIS
     Route: 065

REACTIONS (3)
  - Troponin increased [Recovered/Resolved]
  - Cutaneous amyloidosis [Recovered/Resolved]
  - Skin ulcer [Recovered/Resolved]
